FAERS Safety Report 10416524 (Version 2)
Quarter: 2014Q3

REPORT INFORMATION
  Report Type: Spontaneous
  Country: CO (occurrence: CO)
  Receive Date: 20140828
  Receipt Date: 20140911
  Transmission Date: 20150326
  Serious: Yes (Death, Hospitalization)
  Sender: FDA-Public Use
  Company Number: CO-GLAXOSMITHKLINE-A1086789A

PATIENT
  Sex: Female

DRUGS (1)
  1. REVOLADE [Suspect]
     Active Substance: ELTROMBOPAG
     Indication: MYELODYSPLASTIC SYNDROME
     Dosage: 25MG PER DAY
     Route: 048

REACTIONS (2)
  - Gastric disorder [Unknown]
  - Death [Fatal]
